FAERS Safety Report 5792136-8 (Version None)
Quarter: 2008Q2

REPORT INFORMATION
  Report Type: 
  Country: None (occurrence: None)
  Receive Date: 20080626
  Receipt Date: 20080624
  Transmission Date: 20081010
  Serious: Yes (Death, Other)
  Sender: FDA-Public Use
  Company Number: PHEH2008US01207

PATIENT
  Sex: Female
  Weight: 94.785 kg

DRUGS (8)
  1. EXJADE [Suspect]
     Indication: IRON OVERLOAD
     Dosage: UNK
     Dates: start: 20070501
  2. MS CONTIN [Concomitant]
     Dosage: 100 MG, BID
  3. LORCET-HD [Concomitant]
     Dosage: 7.5 MG, Q4H PRN
  4. PLAVIX [Concomitant]
     Dosage: 75 MG, UNK
  5. FOLIC ACID [Concomitant]
     Dosage: 1 MG, UNK
  6. ADVAIR DISKUS 100/50 [Concomitant]
  7. NORVASC [Concomitant]
     Dosage: 10 MG, UNK
  8. HYDROCHLOROTHIAZIDE [Concomitant]
     Dosage: 25 MG, UNK

REACTIONS (26)
  - ANEURYSM [None]
  - ASPARTATE AMINOTRANSFERASE INCREASED [None]
  - BLOOD ALBUMIN INCREASED [None]
  - BLOOD ALKALINE PHOSPHATASE INCREASED [None]
  - BLOOD BILIRUBIN INCREASED [None]
  - BLOOD BILIRUBIN UNCONJUGATED INCREASED [None]
  - BLOOD CHLORIDE INCREASED [None]
  - BLOOD SODIUM INCREASED [None]
  - CHEST PAIN [None]
  - COUGH [None]
  - DYSPNOEA [None]
  - DYSPNOEA EXERTIONAL [None]
  - HAEMATOCRIT DECREASED [None]
  - HAEMOGLOBIN DECREASED [None]
  - HAEMOGLOBIN S INCREASED [None]
  - NAUSEA [None]
  - OEDEMA PERIPHERAL [None]
  - PLATELET COUNT INCREASED [None]
  - PROTEIN TOTAL INCREASED [None]
  - RED BLOOD CELL COUNT DECREASED [None]
  - RED CELL DISTRIBUTION WIDTH INCREASED [None]
  - RETICULOCYTE COUNT INCREASED [None]
  - SERUM FERRITIN INCREASED [None]
  - SICKLE CELL ANAEMIA WITH CRISIS [None]
  - VOMITING [None]
  - WHITE BLOOD CELL COUNT INCREASED [None]
